FAERS Safety Report 11096129 (Version 1)
Quarter: 2015Q2

REPORT INFORMATION
  Report Type: Spontaneous
  Country: NO (occurrence: None)
  Receive Date: 20150505
  Receipt Date: 20150505
  Transmission Date: 20150821
  Serious: Yes (Hospitalization)
  Sender: FDA-Public Use
  Company Number: FK201501989

PATIENT
  Age: 53 Year
  Sex: Female

DRUGS (8)
  1. IMOVANE [Concomitant]
     Active Substance: ZOPICLONE
  2. CARBOPLATIN INJECTION 10MG/ML (CARBOPLATIN USP) (CARBOPLATIN USP) [Suspect]
     Active Substance: CARBOPLATIN
     Indication: ADJUVANT THERAPY
     Dosage: INTRAVENOUS (NOT OTHERWISE SPECIFIED)?
     Route: 042
     Dates: start: 20140623, end: 20140628
  3. MYFENAX (MYCOPHENOLATE MOFETIL) [Concomitant]
  4. TRAMADOL ACTAVIS (TRAMADOL HYDROCHLORIDE) [Concomitant]
  5. PREDNISOLON EUROMEDICA (PREDNISOLONE) [Concomitant]
  6. LESCOL (FLUVASTATIN SODIUM) [Concomitant]
  7. PACLITAXEL. [Suspect]
     Active Substance: PACLITAXEL
     Indication: ADJUVANT THERAPY
     Dosage: INTRAVENOUS (NOT OTHERWISE SPECIFIED)?
     Route: 042
     Dates: start: 20140623, end: 20140826
  8. PROGRAF [Concomitant]
     Active Substance: TACROLIMUS\TACROLIMUS ANHYDROUS

REACTIONS (2)
  - Impaired gastric emptying [None]
  - Neurotoxicity [None]

NARRATIVE: CASE EVENT DATE: 201408
